FAERS Safety Report 6843533-0 (Version None)
Quarter: 2010Q3

REPORT INFORMATION
  Report Type: 
  Country: None (occurrence: None)
  Receive Date: 20100712
  Receipt Date: 20100701
  Transmission Date: 20110219
  Serious: Yes (Death)
  Sender: FDA-Public Use
  Company Number: 009559

PATIENT
  Sex: Male
  Weight: 80 kg

DRUGS (1)
  1. PLETAL [Suspect]
     Indication: PERIPHERAL ARTERIAL OCCLUSIVE DISEASE
     Dosage: 100 MG, DAILY DOSE ORAL
     Route: 048
     Dates: start: 20100418, end: 20100419

REACTIONS (1)
  - SUDDEN DEATH [None]
